FAERS Safety Report 11718445 (Version 2)
Quarter: 2015Q4

REPORT INFORMATION
  Report Type: Report from Study
  Country: US (occurrence: US)
  Receive Date: 20151110
  Receipt Date: 20151123
  Transmission Date: 20160304
  Serious: Yes (Hospitalization)
  Sender: FDA-Public Use
  Company Number: US-BIOGENIDEC-2015BI148500

PATIENT
  Age: 35 Year
  Sex: Male

DRUGS (11)
  1. KEPPRA [Concomitant]
     Active Substance: LEVETIRACETAM
  2. DILANTIN [Concomitant]
     Active Substance: PHENYTOIN
  3. CARBATROL [Concomitant]
     Active Substance: CARBAMAZEPINE
  4. CARBAMAZEPINE. [Concomitant]
     Active Substance: CARBAMAZEPINE
  5. TECFIDERA [Suspect]
     Active Substance: DIMETHYL FUMARATE
     Indication: MULTIPLE SCLEROSIS
     Route: 048
     Dates: start: 20131204, end: 20131210
  6. BACLOFEN. [Concomitant]
     Active Substance: BACLOFEN
  7. DESMOPRESSIN [Concomitant]
     Active Substance: DESMOPRESSIN
  8. MYRBETRIQ [Concomitant]
     Active Substance: MIRABEGRON
  9. TECFIDERA [Suspect]
     Active Substance: DIMETHYL FUMARATE
     Indication: MULTIPLE SCLEROSIS
     Route: 048
     Dates: start: 20131211
  10. TEGRETOL [Concomitant]
     Active Substance: CARBAMAZEPINE
  11. LITHIUM. [Concomitant]
     Active Substance: LITHIUM

REACTIONS (1)
  - Vitamin D decreased [Unknown]
